FAERS Safety Report 13282382 (Version 2)
Quarter: 2018Q1

REPORT INFORMATION
  Report Type: Spontaneous
  Country: US (occurrence: US)
  Receive Date: 20170301
  Receipt Date: 20180223
  Transmission Date: 20180508
  Serious: No
  Sender: FDA-Public Use
  Company Number: US-FERRINGPH-2016FE03596

PATIENT
  Sex: Female

DRUGS (1)
  1. STIMATE [Suspect]
     Active Substance: DESMOPRESSIN ACETATE
     Indication: COAGULATION FACTOR DEFICIENCY
     Dosage: 1 DF (1.5 MG INTO ONE NOSTRIL), AS NEEDED
     Route: 045
     Dates: start: 20160517

REACTIONS (1)
  - Product use in unapproved indication [Unknown]
